FAERS Safety Report 14636784 (Version 2)
Quarter: 2018Q2

REPORT INFORMATION
  Report Type: Report from Study
  Country: FR (occurrence: FR)
  Receive Date: 20180314
  Receipt Date: 20180417
  Transmission Date: 20180711
  Serious: Yes (Death)
  Sender: FDA-Public Use
  Company Number: FR-ASTRAZENECA-2018SE32107

PATIENT
  Age: 39 Year
  Sex: Male

DRUGS (5)
  1. DURVALUMAB. [Suspect]
     Active Substance: DURVALUMAB
     Indication: LUNG ADENOCARCINOMA STAGE IV
     Route: 042
  2. PEMETREXED. [Concomitant]
     Active Substance: PEMETREXED
     Indication: LUNG ADENOCARCINOMA STAGE IV
     Route: 042
  3. BEVACIZUMAB. [Concomitant]
     Active Substance: BEVACIZUMAB
     Indication: LUNG ADENOCARCINOMA STAGE IV
     Route: 042
  4. CARBOPLATIN. [Concomitant]
     Active Substance: CARBOPLATIN
     Indication: LUNG ADENOCARCINOMA STAGE IV
     Route: 042
  5. PACLITAXEL. [Concomitant]
     Active Substance: PACLITAXEL
     Indication: LUNG ADENOCARCINOMA STAGE IV
     Route: 042

REACTIONS (1)
  - Thrombocytopenia [Fatal]

NARRATIVE: CASE EVENT DATE: 201611
